FAERS Safety Report 8958383 (Version 2)
Quarter: 2012Q4

REPORT INFORMATION
  Report Type: 
  Country: US (occurrence: US)
  Receive Date: 20121210
  Receipt Date: 20121217
  Transmission Date: 20130627
  Serious: Yes (Other)
  Sender: FDA-Public Use
  Company Number: US-VIIV HEALTHCARE LIMITED-A1004708A

PATIENT
  Age: 0 Year
  Sex: Female
  Weight: 1.4 kg

DRUGS (2)
  1. COMBIVIR [Suspect]
     Indication: ANTIRETROVIRAL THERAPY
     Dosage: 2TAB per day
     Route: 064
     Dates: start: 20120625
  2. KALETRA [Suspect]
     Indication: ANTIRETROVIRAL THERAPY
     Route: 064
     Dates: start: 20120625

REACTIONS (5)
  - Foetal growth restriction [Unknown]
  - Foetal heart rate deceleration [Unknown]
  - Foetal heart rate decreased [Unknown]
  - Premature baby [Unknown]
  - Foetal exposure during pregnancy [Unknown]
